FAERS Safety Report 8522503-0 (Version None)
Quarter: 2012Q3

REPORT INFORMATION
  Report Type: 
  Country: None (occurrence: None)
  Receive Date: 20120719
  Receipt Date: 20120709
  Transmission Date: 20120928
  Serious: No
  Sender: FDA-Public Use
  Company Number: US-B.I. PHARMACEUTICALS,INC./RIDGEFIELD-2012-BP-15288BP

PATIENT
  Sex: Female

DRUGS (2)
  1. AGGRENOX [Suspect]
     Indication: CEREBROVASCULAR ACCIDENT PROPHYLAXIS
     Dates: start: 20110101
  2. MEDICATION NOT FURTHER SPECIFIED [Concomitant]
     Indication: HYPERTENSION

REACTIONS (1)
  - MUSCLE TIGHTNESS [None]
